FAERS Safety Report 22594295 (Version 1)
Quarter: 2023Q2

REPORT INFORMATION
  Report Type: Spontaneous
  Country: FR (occurrence: FR)
  Receive Date: 20230613
  Receipt Date: 20230613
  Transmission Date: 20230722
  Serious: Yes (Hospitalization)
  Sender: FDA-Public Use
  Company Number: None

PATIENT
  Age: 76 Year
  Sex: Male
  Weight: 71 kg

DRUGS (20)
  1. GANCICLOVIR [Suspect]
     Active Substance: GANCICLOVIR
     Indication: Cytomegalovirus viraemia
     Dosage: LYOPHILISATE FOR PARENTERAL USE (INFUSION)?DAILY DOSE: 700 MILLIGRAM
     Route: 042
     Dates: start: 20230407, end: 20230514
  2. GANCICLOVIR [Suspect]
     Active Substance: GANCICLOVIR
     Indication: Cytomegalovirus chorioretinitis
     Dosage: LYOPHILISATE FOR PARENTERAL USE (INFUSION)?DAILY DOSE: 700 MILLIGRAM
     Route: 042
     Dates: start: 20230407, end: 20230514
  3. ISONIAZID\RIFAMPIN [Suspect]
     Active Substance: ISONIAZID\RIFAMPIN
     Indication: Disseminated tuberculosis
     Dosage: DAILY DOSE: 600 MILLIGRAM
     Route: 048
     Dates: start: 20230413, end: 20230514
  4. LANSOPRAZOLE [Concomitant]
     Active Substance: LANSOPRAZOLE
  5. BISOPROLOL FUMARATE [Concomitant]
     Active Substance: BISOPROLOL FUMARATE
     Dosage: TABLET SCORED FILM-COATED TABLET
  6. FILGRASTIM [Concomitant]
     Active Substance: FILGRASTIM
     Dosage: 48 MU/0.5 ML
  7. ATOVAQUONE [Concomitant]
     Active Substance: ATOVAQUONE
     Dosage: 750MG/5ML,
  8. ELIQUIS [Concomitant]
     Active Substance: APIXABAN
  9. PAROXETINE HYDROCHLORIDE [Concomitant]
     Active Substance: PAROXETINE HYDROCHLORIDE
     Dosage: SCORED FILM-COATED TABLET
  10. FUROSEMIDE [Concomitant]
     Active Substance: FUROSEMIDE
  11. ARANESP [Concomitant]
     Active Substance: DARBEPOETIN ALFA
     Dosage: SOLUTION FOR INJECTION IN PRE-FILLED SYRINGE
  12. CYANOCOBALAMIN\PYRIDOXINE HYDROCHLORIDE\THIAMINE [Concomitant]
     Active Substance: CYANOCOBALAMIN\PYRIDOXINE HYDROCHLORIDE\THIAMINE
  13. DEXAMETHASONE SODIUM PHOSPHATE [Concomitant]
     Active Substance: DEXAMETHASONE SODIUM PHOSPHATE
  14. POTASSIUM CHLORIDE [Concomitant]
     Active Substance: POTASSIUM CHLORIDE
  15. CYCLOPHOSPHAMIDE [Concomitant]
     Active Substance: CYCLOPHOSPHAMIDE
     Indication: Diffuse large B-cell lymphoma stage III
     Dosage: R-CHOP
     Dates: start: 202302
  16. DOXORUBICIN [Concomitant]
     Active Substance: DOXORUBICIN
     Indication: Diffuse large B-cell lymphoma stage III
     Dosage: R-CHOP
     Dates: start: 202302
  17. PREDNISONE [Concomitant]
     Active Substance: PREDNISONE
     Indication: Diffuse large B-cell lymphoma stage III
     Dosage: R-CHOP
     Dates: start: 202302
  18. RITUXIMAB [Concomitant]
     Active Substance: RITUXIMAB
     Indication: Diffuse large B-cell lymphoma stage III
     Dates: start: 202302
  19. VINCRISTINE [Concomitant]
     Active Substance: VINCRISTINE
     Indication: Diffuse large B-cell lymphoma stage III
     Dosage: R-CHOP
     Dates: start: 202302
  20. RIFATER [Concomitant]
     Active Substance: ISONIAZID\PYRAZINAMIDE\RIFAMPIN
     Indication: Disseminated tuberculosis

REACTIONS (2)
  - Cardiac failure [Unknown]
  - Pancytopenia [Not Recovered/Not Resolved]

NARRATIVE: CASE EVENT DATE: 20230510
